FAERS Safety Report 4904836-X (Version None)
Quarter: 2006Q1

REPORT INFORMATION
  Report Type: 
  Country: None (occurrence: None)
  Receive Date: 20060208
  Receipt Date: 20051011
  Transmission Date: 20060701
  Serious: No
  Sender: FDA-Public Use
  Company Number: US-GLAXOSMITHKLINE-A0577820A

PATIENT
  Age: 63 Year
  Sex: Female

DRUGS (5)
  1. PAROXETINE HCL [Suspect]
     Indication: DRUG USE FOR UNKNOWN INDICATION
     Dosage: 30MG PER DAY
     Route: 048
  2. L-THYROXINE [Concomitant]
  3. DIAVAN [Concomitant]
  4. METFORMIN HYDROCHLORIDE [Concomitant]
  5. FEMARA [Concomitant]

REACTIONS (1)
  - DRUG INEFFECTIVE [None]
